FAERS Safety Report 6021632-3 (Version None)
Quarter: 2008Q4

REPORT INFORMATION
  Report Type: 
  Country: None (occurrence: None)
  Receive Date: 20081229
  Receipt Date: 20081212
  Transmission Date: 20090506
  Serious: Yes (Other)
  Sender: FDA-Public Use
  Company Number: CH-PFIZER INC-2008155807

PATIENT

DRUGS (7)
  1. VARENICLINE TARTRATE [Suspect]
     Indication: SMOKING CESSATION THERAPY
     Route: 048
     Dates: start: 20081105
  2. INSULIN INJECTION, ISOPHANE [Concomitant]
     Dosage: UNK
     Route: 058
  3. TEGRETOL [Concomitant]
     Dosage: 400 MG, UNK
     Route: 048
  4. TRIATEC [Concomitant]
     Dosage: 2.5 MG, UNK
     Route: 048
  5. ALL OTHER THERAPEUTIC PRODUCTS [Concomitant]
     Dosage: 40 MG, UNK
     Route: 048
  6. PLAVIX [Concomitant]
     Dosage: 75 MG, UNK
     Route: 048
  7. MIZOLLEN [Concomitant]
     Dosage: 10 MG, UNK
     Route: 048

REACTIONS (2)
  - HYPERGLYCAEMIA [None]
  - HYPOGLYCAEMIA [None]
